FAERS Safety Report 15671743 (Version 5)
Quarter: 2019Q2

REPORT INFORMATION
  Report Type: Report from Study
  Country: US (occurrence: US)
  Receive Date: 20181129
  Receipt Date: 20190523
  Transmission Date: 20190711
  Serious: Yes (Life-Threatening, Other)
  Sender: FDA-Public Use
  Company Number: US-TESARO, INC-US-2018TSO00280

PATIENT
  Age: 80 Year
  Sex: Female

DRUGS (3)
  1. ZEJULA [Suspect]
     Active Substance: NIRAPARIB
     Dosage: 200 MG, QD
     Route: 048
     Dates: start: 20180301, end: 201805
  2. ZEJULA [Suspect]
     Active Substance: NIRAPARIB
     Indication: FALLOPIAN TUBE CANCER
     Dosage: 300 MG, DAILY
     Route: 048
     Dates: start: 20180104, end: 20180131
  3. ZEJULA [Suspect]
     Active Substance: NIRAPARIB
     Dosage: 100 MG, DAILY (HS WITHOUT FOOD)
     Dates: start: 20190123

REACTIONS (18)
  - Pruritus [Unknown]
  - Cough [Recovered/Resolved]
  - Thrombocytopenia [Recovered/Resolved]
  - Paraesthesia [Not Recovered/Not Resolved]
  - Fatigue [Not Recovered/Not Resolved]
  - Bone marrow failure [Unknown]
  - Blood count abnormal [Not Recovered/Not Resolved]
  - Dehydration [Not Recovered/Not Resolved]
  - Decreased appetite [Recovered/Resolved]
  - Vomiting [Recovered/Resolved]
  - Constipation [Recovering/Resolving]
  - Red blood cell count decreased [Not Recovered/Not Resolved]
  - Fall [Unknown]
  - Nausea [Recovered/Resolved]
  - Hypotension [Recovered/Resolved]
  - Memory impairment [Unknown]
  - Recurrent cancer [Unknown]
  - Product dose omission [Unknown]

NARRATIVE: CASE EVENT DATE: 2018
